FAERS Safety Report 5905666-2 (Version None)
Quarter: 2008Q4

REPORT INFORMATION
  Report Type: 
  Country: None (occurrence: None)
  Receive Date: 20081001
  Receipt Date: 20081001
  Transmission Date: 20090506
  Serious: No
  Sender: FDA-Public Use
  Company Number: None

PATIENT
  Age: 73 Year
  Sex: Male

DRUGS (1)
  1. METOPROLOL TARTRATE [Suspect]
     Indication: CARDIAC FAILURE CONGESTIVE
     Dates: start: 20070916

REACTIONS (7)
  - ACUTE MYOCARDIAL INFARCTION [None]
  - ASTHENIA [None]
  - ATRIAL FIBRILLATION [None]
  - FALL [None]
  - HYPOTENSION [None]
  - HYPOVOLAEMIA [None]
  - RENAL FAILURE [None]
